FAERS Safety Report 25329233 (Version 1)
Quarter: 2025Q2

REPORT INFORMATION
  Report Type: Spontaneous
  Country: DE (occurrence: DE)
  Receive Date: 20250519
  Receipt Date: 20250519
  Transmission Date: 20250716
  Serious: Yes (Death, Hospitalization, Other)
  Sender: INDOCO REMEDIES LIMITED
  Company Number: DE-ARISTO PHARMA-FEBU202504291

PATIENT
  Age: 62 Year
  Sex: Male

DRUGS (1)
  1. FEBUXOSTAT [Suspect]
     Active Substance: FEBUXOSTAT
     Indication: Gout
     Route: 065

REACTIONS (8)
  - Cardiovascular insufficiency [Fatal]
  - Arthropathy [Fatal]
  - C-reactive protein increased [Fatal]
  - Drug reaction with eosinophilia and systemic symptoms [Fatal]
  - Body temperature increased [Fatal]
  - Pyrexia [Fatal]
  - Rash morbilliform [Fatal]
  - Gout [Unknown]
